FAERS Safety Report 10868081 (Version 1)
Quarter: 2015Q1

REPORT INFORMATION
  Report Type: Spontaneous
  Country: US (occurrence: US)
  Receive Date: 20150225
  Receipt Date: 20150225
  Transmission Date: 20150721
  Serious: Yes (Other)
  Sender: FDA-Public Use
  Company Number: US-JNJFOC-20150216915

PATIENT
  Sex: Female

DRUGS (1)
  1. IMBRUVICA [Suspect]
     Active Substance: IBRUTINIB
     Indication: CHRONIC LYMPHOCYTIC LEUKAEMIA
     Route: 048
     Dates: start: 20140418, end: 20141205

REACTIONS (5)
  - Headache [Unknown]
  - Back pain [Unknown]
  - Pain [Unknown]
  - Pain in jaw [Unknown]
  - Immobile [Unknown]

NARRATIVE: CASE EVENT DATE: 20141205
